FAERS Safety Report 13647610 (Version 1)
Quarter: 2017Q2

REPORT INFORMATION
  Report Type: Spontaneous
  Country: JP (occurrence: JP)
  Receive Date: 20170613
  Receipt Date: 20170613
  Transmission Date: 20170830
  Serious: Yes (Hospitalization, Other)
  Sender: FDA-Public Use
  Company Number: JP-GLAXOSMITHKLINE-JP2017JPN088546

PATIENT

DRUGS (2)
  1. AMERGE [Suspect]
     Active Substance: NARATRIPTAN HYDROCHLORIDE
     Dosage: UNK
     Route: 048
  2. VALPROATE SODIUM. [Concomitant]
     Active Substance: VALPROATE SODIUM
     Dosage: UNK

REACTIONS (1)
  - Seizure [Unknown]
